FAERS Safety Report 4799944-0 (Version None)
Quarter: 2005Q4

REPORT INFORMATION
  Report Type: 
  Country: None (occurrence: None)
  Receive Date: 20051017
  Receipt Date: 20051005
  Transmission Date: 20060501
  Serious: Yes (Disabling)
  Sender: FDA-Public Use
  Company Number: DK-BRISTOL-MYERS SQUIBB COMPANY-13135918

PATIENT
  Age: 64 Year
  Sex: Male

DRUGS (4)
  1. APROVEL [Suspect]
     Indication: HYPERTENSION
     Dates: start: 20021127, end: 20050819
  2. FUROSEMIDE [Concomitant]
  3. PANTOPRAZOLE SODIUM [Concomitant]
  4. SELO-ZOK [Concomitant]

REACTIONS (4)
  - DIARRHOEA [None]
  - NAUSEA [None]
  - VOMITING [None]
  - WEIGHT DECREASED [None]
